FAERS Safety Report 9101890 (Version 1)
Quarter: 2013Q1

REPORT INFORMATION
  Report Type: Spontaneous
  Country: US (occurrence: US)
  Receive Date: 20130218
  Receipt Date: 20130218
  Transmission Date: 20140127
  Serious: No
  Sender: FDA-Public Use
  Company Number: US-COVIDIEN/TYCO HEALTHCARE/MALLINCKRODT-T201201538

PATIENT
  Age: 30 Year
  Sex: Female

DRUGS (3)
  1. TECHNESCAN HDP [Suspect]
     Dosage: UNK UNK, SINGLE
     Route: 042
     Dates: start: 20120418, end: 20120418
  2. TECHNETIUM TC 99M [Concomitant]
     Dosage: 250 MCI, SINGLE
  3. VITAMINS /90003601/ [Concomitant]
     Dosage: UNK

REACTIONS (1)
  - Drug ineffective [None]
